FAERS Safety Report 7137332-2 (Version None)
Quarter: 2010Q4

REPORT INFORMATION
  Report Type: 
  Country: None (occurrence: None)
  Receive Date: 20101206
  Receipt Date: 20080114
  Transmission Date: 20110411
  Serious: Yes (Death, Hospitalization)
  Sender: FDA-Public Use
  Company Number: US-ACTELION-A-US2008-19150

PATIENT

DRUGS (3)
  1. TRACLEER [Suspect]
     Indication: PULMONARY HYPERTENSION
     Dosage: UNK MG, BID
     Route: 048
     Dates: start: 20040826, end: 20071009
  2. VENTAVIS [Suspect]
     Indication: PULMONARY HYPERTENSION
     Dosage: 5 UG, 6XDAY
     Route: 055
     Dates: start: 20060316, end: 20071017
  3. SILDENAFIL [Concomitant]

REACTIONS (2)
  - DEATH [None]
  - FLUID OVERLOAD [None]
